FAERS Safety Report 21904241 (Version 1)
Quarter: 2023Q1

REPORT INFORMATION
  Report Type: Spontaneous
  Country: US (occurrence: None)
  Receive Date: 20230123
  Receipt Date: 20230123
  Transmission Date: 20230418
  Serious: No
  Sender: FDA-Public Use
  Company Number: None

PATIENT
  Age: 33 Year
  Sex: Female
  Weight: 81.65 kg

DRUGS (4)
  1. VILAZODONE [Suspect]
     Active Substance: VILAZODONE
     Indication: Generalised anxiety disorder
     Dosage: FREQUENCY : DAILY;?
     Route: 048
  2. VILAZODONE [Suspect]
     Active Substance: VILAZODONE
     Indication: Social anxiety disorder
  3. VILAZODONE [Suspect]
     Active Substance: VILAZODONE
     Indication: Binge eating
  4. VILAZODONE [Suspect]
     Active Substance: VILAZODONE
     Indication: Attention deficit hyperactivity disorder

REACTIONS (6)
  - Dizziness [None]
  - Insomnia [None]
  - Electric shock sensation [None]
  - Headache [None]
  - Drug intolerance [None]
  - Product substitution issue [None]

NARRATIVE: CASE EVENT DATE: 20210501
